FAERS Safety Report 13936243 (Version 1)
Quarter: 2017Q3

REPORT INFORMATION
  Report Type: Spontaneous
  Country: CN (occurrence: CN)
  Receive Date: 20170905
  Receipt Date: 20170905
  Transmission Date: 20171127
  Serious: Yes (Hospitalization, Other)
  Sender: FDA-Public Use
  Company Number: CN-GLAXOSMITHKLINE-CN2017GSK134476

PATIENT
  Sex: Female

DRUGS (1)
  1. LAMOTRIGINE. [Suspect]
     Active Substance: LAMOTRIGINE
     Indication: EPILEPSY
     Route: 064

REACTIONS (14)
  - Foetal exposure during pregnancy [Recovered/Resolved]
  - Haemangioma of skin [Unknown]
  - Haemangioma [Recovered/Resolved]
  - Congenital ectodermal dysplasia [Recovered/Resolved]
  - Cyanosis [Recovered/Resolved]
  - Eye haemangioma [Unknown]
  - Congenital optic nerve anomaly [Unknown]
  - Conjunctival disorder [Recovered/Resolved]
  - Eyelid oedema [Recovered/Resolved]
  - Oedema [Recovered/Resolved]
  - Exophthalmos [Recovered/Resolved]
  - Infantile haemangioma [Unknown]
  - Conjunctival hyperaemia [Recovered/Resolved]
  - Corneal disorder [Recovered/Resolved]
